FAERS Safety Report 23227471 (Version 2)
Quarter: 2023Q4

REPORT INFORMATION
  Report Type: Spontaneous
  Country: JP (occurrence: JP)
  Receive Date: 20231124
  Receipt Date: 20231205
  Transmission Date: 20240109
  Serious: Yes (Hospitalization, Other)
  Sender: FDA-Public Use
  Company Number: JP-PFIZER INC-202300306185

PATIENT
  Age: 83 Year
  Sex: Male
  Weight: 52.3 kg

DRUGS (7)
  1. INLYTA [Suspect]
     Active Substance: AXITINIB
     Indication: Renal neoplasm
     Dosage: 2 MG, 2X/DAY
     Route: 048
     Dates: start: 20220421, end: 20230914
  2. AMITIZA [Concomitant]
     Active Substance: LUBIPROSTONE
     Dosage: 24 UG, 2X/DAY
     Route: 048
     Dates: end: 20230921
  3. MIYA-BM [Concomitant]
     Active Substance: CLOSTRIDIUM BUTYRICUM SPORES STRAIN M-55
     Dosage: 1 G, 3X/DAY
     Route: 048
     Dates: end: 20230921
  4. LEVOCETIRIZINE [Concomitant]
     Active Substance: LEVOCETIRIZINE
     Dosage: 5 MG, DAILY
     Route: 048
     Dates: end: 20230921
  5. OLMESARTAN [Concomitant]
     Active Substance: OLMESARTAN
     Dosage: 20 MG, 1X/DAY
     Route: 048
     Dates: end: 20230916
  6. NIFEDIPINE [Concomitant]
     Active Substance: NIFEDIPINE
     Dosage: 20 MG, 2X/DAY
     Route: 048
     Dates: end: 20230916
  7. EPINASTINE [Concomitant]
     Active Substance: EPINASTINE
     Dosage: UNK

REACTIONS (5)
  - Scapula fracture [Unknown]
  - Clavicle fracture [Unknown]
  - Spinal compression fracture [Unknown]
  - Nausea [Not Recovered/Not Resolved]
  - Vomiting [Not Recovered/Not Resolved]

NARRATIVE: CASE EVENT DATE: 20230101
